FAERS Safety Report 4563851-9 (Version None)
Quarter: 2005Q1

REPORT INFORMATION
  Report Type: 
  Country: None (occurrence: None)
  Receive Date: 20050128
  Receipt Date: 20041018
  Transmission Date: 20050727
  Serious: No
  Sender: FDA-Public Use
  Company Number: US-GLAXOSMITHKLINE-A0530214A

PATIENT
  Sex: Female

DRUGS (4)
  1. LEXIVA [Suspect]
     Indication: HIV INFECTION
     Dosage: 700MG TWICE PER DAY
     Route: 048
     Dates: start: 20040501, end: 20040927
  2. VIREAD [Concomitant]
  3. REYATAZ [Concomitant]
  4. NORVIR [Concomitant]

REACTIONS (1)
  - FAT REDISTRIBUTION [None]
